FAERS Safety Report 8382646-1 (Version None)
Quarter: 2012Q2

REPORT INFORMATION
  Report Type: 
  Country: None (occurrence: None)
  Receive Date: 20120503
  Receipt Date: 20120409
  Transmission Date: 20120825
  Serious: No
  Sender: FDA-Public Use
  Company Number: 2011029510

PATIENT
  Age: 38 Year
  Sex: Female
  Weight: 108.8633 kg

DRUGS (27)
  1. ACETAMINOPHEN [Concomitant]
  2. AF-IBUPROFEN (IBUPROFEN) [Concomitant]
  3. HIZENTRA [Suspect]
  4. HIZENTRA [Suspect]
  5. CIPRO XR [Concomitant]
  6. MULTIVITAMIN (MULTIVITAMIN /00831701/) [Concomitant]
  7. HIZENTRA [Suspect]
  8. ZITHROMAX [Concomitant]
  9. CRANBERRY (VACCINIUM MACROCARPON) [Concomitant]
  10. MILK THISTLE (SILYBUM MARIANUM) [Concomitant]
  11. HIZENTRA [Suspect]
  12. PREDNISONE TAB [Concomitant]
  13. FISH OIL (FISH OIL) [Concomitant]
  14. IMURAN (AZATHIOPRINE) [Concomitant]
  15. POTASSIUM CHLORIDE [Concomitant]
  16. HIZENTRA [Suspect]
     Indication: IMMUNODEFICIENCY COMMON VARIABLE
     Dosage: SEE IMAGE
     Route: 058
     Dates: start: 20110328
  17. HIZENTRA [Suspect]
     Indication: IMMUNODEFICIENCY COMMON VARIABLE
     Dosage: SEE IMAGE
     Route: 058
     Dates: start: 20111108
  18. HIZENTRA [Suspect]
     Indication: IMMUNODEFICIENCY COMMON VARIABLE
     Dosage: SEE IMAGE
     Route: 058
     Dates: start: 20110121
  19. HIZENTRA [Suspect]
     Indication: IMMUNODEFICIENCY COMMON VARIABLE
     Dosage: SEE IMAGE
     Route: 058
     Dates: start: 20120401
  20. HIZENTRA [Suspect]
     Indication: IMMUNODEFICIENCY COMMON VARIABLE
     Dosage: SEE IMAGE
     Route: 058
     Dates: start: 20110808
  21. HIZENTRA [Suspect]
     Indication: IMMUNODEFICIENCY COMMON VARIABLE
     Dosage: SEE IMAGE
     Route: 058
     Dates: start: 20120101
  22. LASIX [Concomitant]
  23. IRON (IRON) [Concomitant]
  24. B-COMPLEX WITH VITAMIN C (VITAMIN B-COMPLEX [Concomitant]
  25. ASCORBIC ACID [Concomitant]
  26. CINNAMON (CINNAMOMUM VERUM) [Concomitant]
  27. CELLCEPT [Concomitant]

REACTIONS (2)
  - SINUSITIS [None]
  - INFUSION SITE PAIN [None]
